FAERS Safety Report 5358537-7 (Version None)
Quarter: 2007Q2

REPORT INFORMATION
  Report Type: 
  Country: None (occurrence: None)
  Receive Date: 20070601
  Receipt Date: 20070412
  Transmission Date: 20071010
  Serious: No
  Sender: FDA-Public Use
  Company Number: PHEH2007US05081

PATIENT
  Age: 86 Year
  Sex: Female

DRUGS (1)
  1. ENABLEX [Suspect]
     Indication: URINARY INCONTINENCE
     Dosage: 7.5 MG QD, ORAL
     Route: 048
     Dates: start: 20070314

REACTIONS (4)
  - BURNING SENSATION [None]
  - INSOMNIA [None]
  - LIMB DISCOMFORT [None]
  - PAIN [None]
